FAERS Safety Report 17635407 (Version 1)
Quarter: 2020Q2

REPORT INFORMATION
  Report Type: Spontaneous
  Country: US (occurrence: US)
  Receive Date: 20200407
  Receipt Date: 20200407
  Transmission Date: 20200713
  Serious: No
  Sender: FDA-Public Use
  Company Number: US-JNJFOC-20200308709

PATIENT
  Age: 65 Year
  Sex: Female
  Weight: 86.26 kg

DRUGS (1)
  1. WOMENS ROGAINE UNSCENTED [Suspect]
     Active Substance: MINOXIDIL
     Indication: ALOPECIA
     Dosage: NICKLE SIZE EVERYDAY?THE PRODUCT LAST ADMINISTERED ON FEB-2020 (ABOUT A WEEK AND A HALF AGO)
     Route: 061
     Dates: start: 201910

REACTIONS (2)
  - Dandruff [Recovered/Resolved]
  - Incorrect dose administered [Unknown]

NARRATIVE: CASE EVENT DATE: 201910
